FAERS Safety Report 16244018 (Version 1)
Quarter: 2019Q2

REPORT INFORMATION
  Report Type: Spontaneous
  Country: US (occurrence: US)
  Receive Date: 20190426
  Receipt Date: 20190426
  Transmission Date: 20190711
  Serious: No
  Sender: FDA-Public Use
  Company Number: US-AMGEN-USASP2019063196

PATIENT
  Age: 61 Year
  Sex: Female

DRUGS (1)
  1. PROLIA [Suspect]
     Active Substance: DENOSUMAB
     Indication: OSTEOPOROSIS POSTMENOPAUSAL
     Dosage: 60 MILLIGRAM, Q6MO
     Route: 065

REACTIONS (6)
  - Tooth extraction [Recovered/Resolved]
  - Back pain [Unknown]
  - Dental implantation [Unknown]
  - Neck pain [Unknown]
  - Feeling hot [Unknown]
  - Inflammation [Unknown]

NARRATIVE: CASE EVENT DATE: 201903
